FAERS Safety Report 5370664-7 (Version None)
Quarter: 2007Q2

REPORT INFORMATION
  Report Type: 
  Country: None (occurrence: None)
  Receive Date: 20070618
  Receipt Date: 20070102
  Transmission Date: 20071010
  Serious: Yes (Life-Threatening, Hospitalization)
  Sender: FDA-Public Use
  Company Number: PHEH2006US06534

PATIENT
  Age: 48 Year
  Sex: Male

DRUGS (4)
  1. GLEEVEC [Suspect]
     Indication: CHRONIC MYELOID LEUKAEMIA
     Dosage: 800 MG, QD, ORAL; 600 MG, QD, ORAL; 800 MG, QD, ORAL; 600 MG, QD, ORAL
     Route: 048
     Dates: start: 20040914, end: 20041008
  2. GLEEVEC [Suspect]
     Indication: CHRONIC MYELOID LEUKAEMIA
     Dosage: 800 MG, QD, ORAL; 600 MG, QD, ORAL; 800 MG, QD, ORAL; 600 MG, QD, ORAL
     Route: 048
     Dates: start: 20041008, end: 20050203
  3. GLEEVEC [Suspect]
     Indication: CHRONIC MYELOID LEUKAEMIA
     Dosage: 800 MG, QD, ORAL; 600 MG, QD, ORAL; 800 MG, QD, ORAL; 600 MG, QD, ORAL
     Route: 048
     Dates: start: 20050203, end: 20060517
  4. GLEEVEC [Suspect]
     Indication: CHRONIC MYELOID LEUKAEMIA
     Dosage: 800 MG, QD, ORAL; 600 MG, QD, ORAL; 800 MG, QD, ORAL; 600 MG, QD, ORAL
     Route: 048
     Dates: start: 20060602

REACTIONS (9)
  - ASCITES [None]
  - CARDIAC TAMPONADE [None]
  - DYSPNOEA [None]
  - FATIGUE [None]
  - HEPATIC ENZYME INCREASED [None]
  - OEDEMA PERIPHERAL [None]
  - PERICARDIAL EXCISION [None]
  - PERICARDITIS [None]
  - PLEURAL EFFUSION [None]
